FAERS Safety Report 17395724 (Version 4)
Quarter: 2020Q2

REPORT INFORMATION
  Report Type: Spontaneous
  Country: GB (occurrence: GB)
  Receive Date: 20200210
  Receipt Date: 20200514
  Transmission Date: 20200713
  Serious: Yes (Death, Life-Threatening)
  Sender: FDA-Public Use
  Company Number: NVSC2020GB034261

PATIENT
  Age: 31 Year
  Sex: Male
  Weight: 57 kg

DRUGS (1)
  1. KYMRIAH [Suspect]
     Active Substance: TISAGENLECLEUCEL
     Indication: LYMPHOMA
     Dosage: UNK
     Route: 065
     Dates: start: 201908

REACTIONS (3)
  - Lymphoma [Fatal]
  - Malignant neoplasm progression [Fatal]
  - Blood lactate dehydrogenase decreased [Unknown]
